FAERS Safety Report 15292417 (Version 3)
Quarter: 2020Q3

REPORT INFORMATION
  Report Type: Spontaneous
  Country: DE (occurrence: DE)
  Receive Date: 20180818
  Receipt Date: 20200804
  Transmission Date: 20201102
  Serious: Yes (Hospitalization, Other)
  Sender: FDA-Public Use
  Company Number: DE-AUROBINDO-AUR-APL-2018-042439

PATIENT
  Sex: Male
  Weight: 84 kg

DRUGS (12)
  1. VOTRIENT [Suspect]
     Active Substance: PAZOPANIB HYDROCHLORIDE
     Indication: METASTATIC RENAL CELL CARCINOMA
     Dosage: 800 MILLIGRAM, ONCE A DAY
     Route: 048
     Dates: start: 20170619, end: 20170908
  2. PANTOPRAZOL [Concomitant]
     Active Substance: PANTOPRAZOLE SODIUM
     Indication: PROPHYLAXIS
     Dosage: UNK
     Route: 065
  3. RAMIPRIL. [Concomitant]
     Active Substance: RAMIPRIL
     Indication: HYPERTENSION
  4. BISOPROLOL [Suspect]
     Active Substance: BISOPROLOL
     Indication: HYPERTENSION
     Dosage: 2.5 MILLIGRAM, ONCE A DAY
     Route: 048
  5. MOXONIDINE [Suspect]
     Active Substance: MOXONIDINE
     Indication: HYPERTENSION
     Dosage: 0.2 MILLIGRAM, ONCE A DAY
     Route: 048
  6. CETIRIZIN [Concomitant]
     Active Substance: CETIRIZINE HYDROCHLORIDE
     Indication: PRODUCT USED FOR UNKNOWN INDICATION
     Dosage: 10 MILLIGRAM, ONCE A DAY
     Route: 048
     Dates: start: 20171206
  7. ELIQUIS [Concomitant]
     Active Substance: APIXABAN
     Indication: ATRIAL FIBRILLATION
     Dosage: 2.5 MILLIGRAM, TWO TIMES A DAY (5 MILLIGRAM, ONCE A DAY)
     Route: 048
     Dates: start: 20170829
  8. FUROSEMID [Concomitant]
     Active Substance: FUROSEMIDE
     Indication: HYPERTENSION
     Dosage: 400 MILLIGRAM, ONCE A DAY
     Route: 048
  9. LOPERAMID [Concomitant]
     Active Substance: LOPERAMIDE
     Indication: PROPHYLAXIS
  10. LOPERAMID [Concomitant]
     Active Substance: LOPERAMIDE
     Indication: DIARRHOEA
     Dosage: 2 MG, PRN
     Route: 048
     Dates: start: 20170622
  11. RAMIPRIL. [Concomitant]
     Active Substance: RAMIPRIL
     Indication: SINUS BRADYCARDIA
     Dosage: 5 MILLIGRAM, ONCE A DAY
     Route: 048
  12. KALINOR [Concomitant]
     Indication: ATRIAL FIBRILLATION
     Dosage: UNK UNK, ONCE A DAY (TID)
     Route: 048
     Dates: start: 201707

REACTIONS (5)
  - Peripheral artery occlusion [Recovered/Resolved]
  - Blood pressure increased [Recovered/Resolved]
  - Peripheral embolism [Recovered/Resolved]
  - Thrombosis [Recovered/Resolved]
  - Sinus bradycardia [Recovering/Resolving]

NARRATIVE: CASE EVENT DATE: 20170708
